FAERS Safety Report 5479271-9 (Version None)
Quarter: 2007Q4

REPORT INFORMATION
  Report Type: 
  Country: None (occurrence: None)
  Receive Date: 20071008
  Receipt Date: 20071003
  Transmission Date: 20080405
  Serious: Yes (Other)
  Sender: FDA-Public Use
  Company Number: FR-BRISTOL-MYERS SQUIBB COMPANY-13889548

PATIENT
  Age: 42 Year
  Sex: Male
  Weight: 60 kg

DRUGS (9)
  1. SPRYCEL [Suspect]
     Indication: CHRONIC MYELOID LEUKAEMIA
     Dosage: INTERRUPTED BETWEEN 20-JUL-2007 AND 26-JUL-2007
     Route: 048
     Dates: start: 20070705, end: 20070802
  2. TIENAM [Concomitant]
  3. AMIKLIN [Concomitant]
  4. CANCIDAS [Concomitant]
  5. MORPHINE [Concomitant]
  6. ZOFRAN [Concomitant]
  7. NEUPOGEN [Concomitant]
  8. ZOLPIDEM TARTRATE [Concomitant]
  9. EMEND [Concomitant]

REACTIONS (1)
  - HAEMOLYSIS [None]
